FAERS Safety Report 11340220 (Version 2)
Quarter: 2015Q3

REPORT INFORMATION
  Report Type: Report from Study
  Country: US (occurrence: US)
  Receive Date: 20150805
  Receipt Date: 20150901
  Transmission Date: 20151125
  Serious: No
  Sender: FDA-Public Use
  Company Number: US-AMGEN-USASL2015074956

PATIENT
  Age: 63 Year
  Sex: Female

DRUGS (1)
  1. ENBREL [Suspect]
     Active Substance: ETANERCEPT
     Indication: PSORIASIS
     Dosage: 50 MG, UNK
     Route: 065
     Dates: start: 20150430

REACTIONS (8)
  - Headache [Unknown]
  - Skin warm [Unknown]
  - Lymphadenopathy [Unknown]
  - Erythema [Unknown]
  - Diarrhoea [Recovered/Resolved]
  - Local swelling [Unknown]
  - Nausea [Recovered/Resolved]
  - Swelling face [Unknown]

NARRATIVE: CASE EVENT DATE: 2015
